FAERS Safety Report 7267626-1 (Version None)
Quarter: 2011Q1

REPORT INFORMATION
  Report Type: 
  Country: None (occurrence: None)
  Receive Date: 20110201
  Receipt Date: 20110124
  Transmission Date: 20110831
  Serious: Yes (Other)
  Sender: FDA-Public Use
  Company Number: US-AMGEN-USASP2011004178

PATIENT
  Age: 65 Year
  Sex: Female

DRUGS (3)
  1. SPIRONOLACTONE [Concomitant]
     Dosage: UNK
     Dates: start: 20110112
  2. ENBREL [Suspect]
     Indication: PSORIASIS
     Dosage: 50 MG, QWK
     Dates: start: 20101215
  3. LISINOPRIL [Concomitant]
     Dosage: UNK
     Dates: end: 20110112

REACTIONS (8)
  - INCREASED UPPER AIRWAY SECRETION [None]
  - MUSCLE TIGHTNESS [None]
  - CHEST PAIN [None]
  - BACK PAIN [None]
  - DYSPNOEA [None]
  - CHEST DISCOMFORT [None]
  - MALAISE [None]
  - COUGH [None]
